FAERS Safety Report 10218807 (Version 2)
Quarter: 2014Q2

REPORT INFORMATION
  Report Type: Report from Study
  Country: US (occurrence: US)
  Receive Date: 20140605
  Receipt Date: 20140617
  Transmission Date: 20141212
  Serious: Yes (Hospitalization)
  Sender: FDA-Public Use
  Company Number: US-BAYER-2014-079140

PATIENT
  Age: 50 Year
  Sex: Female

DRUGS (13)
  1. SORAFENIB (RAF KINASE INHIBITOR) [Suspect]
     Indication: GLIOMA
     Dosage: 400 MG, BID (1 WEEK ON 1 WEEK OFF)
     Route: 048
     Dates: start: 20140314, end: 20140320
  2. SORAFENIB (RAF KINASE INHIBITOR) [Suspect]
     Indication: GLIOMA
     Dosage: UNK
     Dates: start: 20140328, end: 20140403
  3. EVEROLIMUS [Suspect]
     Indication: GLIOMA
     Dosage: 5 MG, QD
     Route: 048
     Dates: start: 20140314, end: 20140320
  4. EVEROLIMUS [Suspect]
     Indication: GLIOMA
     Dosage: UNK UNK, QD
     Dates: start: 20140326, end: 20140414
  5. DEXAMETHASONE [Concomitant]
     Dosage: 4 MG, BID
     Route: 048
  6. LEXAPRO [Concomitant]
     Dosage: 10 MG DAILY
     Route: 048
  7. SENNA [Concomitant]
     Dosage: 8.6 MG DAILY
     Route: 048
  8. CLEOCIN [Concomitant]
     Indication: RASH
     Dosage: UNK UNK, PRN
  9. ATIVAN [Concomitant]
     Indication: ANXIETY
     Dosage: 0.5 MG DAILY
     Route: 048
  10. MIRALAX [Concomitant]
     Indication: CONSTIPATION
     Dosage: 17 GRAM DAILY, PRN
     Route: 048
  11. ZOFRAN [Concomitant]
     Indication: NAUSEA
     Dosage: 8 MG, TID, PRN
     Route: 048
  12. ZOFRAN [Concomitant]
     Indication: VOMITING
  13. ZYRTEC [Concomitant]
     Indication: HYPERSENSITIVITY
     Dosage: 10 MG DAILY, PRN
     Route: 048

REACTIONS (2)
  - Deep vein thrombosis [None]
  - Thrombocytopenia [None]
